FAERS Safety Report 7099220-X (Version None)
Quarter: 2010Q4

REPORT INFORMATION
  Report Type: 
  Country: None (occurrence: None)
  Receive Date: 20101112
  Receipt Date: 20101102
  Transmission Date: 20110411
  Serious: Yes (Hospitalization)
  Sender: FDA-Public Use
  Company Number: JP-JNJFOC-20101102371

PATIENT

DRUGS (1)
  1. RISPERDAL [Suspect]
     Indication: AGGRESSION
     Route: 048

REACTIONS (1)
  - LIVER DISORDER [None]
